FAERS Safety Report 5909501-8 (Version None)
Quarter: 2008Q4

REPORT INFORMATION
  Report Type: 
  Country: None (occurrence: None)
  Receive Date: 20081002
  Receipt Date: 20080919
  Transmission Date: 20090506
  Serious: Yes (Life-Threatening)
  Sender: FDA-Public Use
  Company Number: 08P-087-0477684-00

PATIENT
  Age: 15 Day
  Sex: Male

DRUGS (1)
  1. SYNAGIS [Suspect]
     Indication: ANTIVIRAL PROPHYLAXIS
     Dosage: 30 MG (30 MG) INTRAMUSCULAR
     Route: 030
     Dates: start: 20080917, end: 20080917

REACTIONS (2)
  - APNOEIC ATTACK [None]
  - RASH [None]
